FAERS Safety Report 5623075-0 (Version None)
Quarter: 2008Q1

REPORT INFORMATION
  Report Type: 
  Country: None (occurrence: None)
  Receive Date: 20080212
  Receipt Date: 20080204
  Transmission Date: 20080703
  Serious: Yes (Hospitalization)
  Sender: FDA-Public Use
  Company Number: PHHO2005JP09265

PATIENT
  Age: 76 Year
  Sex: Female
  Weight: 54 kg

DRUGS (12)
  1. DIOVAN [Suspect]
     Indication: HYPERTENSION
     Dosage: 80 MG, QD
     Route: 048
     Dates: start: 20040318
  2. ODRIK [Suspect]
     Indication: HYPERTENSION
     Dosage: UNK, UNK
     Route: 048
     Dates: start: 19970421
  3. LASIX [Suspect]
     Indication: GLOMERULONEPHRITIS MEMBRANOUS
     Route: 048
     Dates: start: 20000330
  4. LASIX [Suspect]
  5. MUNOBAL [Suspect]
     Indication: HYPERTENSION
     Route: 048
     Dates: start: 19970421
  6. CEROCRAL [Concomitant]
     Indication: CEREBRAL INFARCTION
     Dosage: UNK, UNK
     Route: 048
     Dates: start: 19970421
  7. MEVALOTIN [Concomitant]
     Indication: HYPERCHOLESTEROLAEMIA
     Dosage: UNK, UNK
     Route: 048
     Dates: start: 19970421, end: 20041014
  8. ASPIRIN [Concomitant]
     Indication: TRANSIENT ISCHAEMIC ATTACK
     Dosage: UNK, UNK
     Route: 048
     Dates: start: 20010719
  9. PERSANTINE [Concomitant]
     Indication: GLOMERULONEPHRITIS MEMBRANOUS
     Dosage: UNK, UNK
     Route: 048
     Dates: start: 19970421
  10. PREDONINE [Concomitant]
     Indication: GLOMERULONEPHRITIS MEMBRANOUS
     Dosage: UNK, UNK
     Route: 048
     Dates: start: 19991216
  11. SIMVASTATIN [Concomitant]
     Indication: HYPERCHOLESTEROLAEMIA
     Dosage: UNK, UNK
     Route: 048
     Dates: start: 20041015, end: 20061108
  12. ZYLORIC [Concomitant]
     Dosage: 100 MG/ DAY
     Route: 048
     Dates: start: 20040805, end: 20060301

REACTIONS (10)
  - ALTERED STATE OF CONSCIOUSNESS [None]
  - CARDIAC FAILURE [None]
  - CARDIAC FAILURE CHRONIC [None]
  - CHEST DISCOMFORT [None]
  - LEFT VENTRICULAR DYSFUNCTION [None]
  - OEDEMA PERIPHERAL [None]
  - ORTHOSTATIC HYPOTENSION [None]
  - PLEURAL EFFUSION [None]
  - PULMONARY CONGESTION [None]
  - TRANSIENT ISCHAEMIC ATTACK [None]
